FAERS Safety Report 15980034 (Version 2)
Quarter: 2019Q2

REPORT INFORMATION
  Report Type: Spontaneous
  Country: DE (occurrence: DE)
  Receive Date: 20190219
  Receipt Date: 20190402
  Transmission Date: 20190711
  Serious: Yes (Death, Other)
  Sender: FDA-Public Use
  Company Number: DE-CELLTRION INC.-2019DE018640

PATIENT

DRUGS (7)
  1. TREOSULFAN [Suspect]
     Active Substance: TREOSULFAN
     Indication: DIFFUSE LARGE B-CELL LYMPHOMA
     Dosage: UNK
     Route: 065
  2. ANTITHYMOCYTE GLOBULIN [Suspect]
     Active Substance: THYMOCYTE IMMUNE GLOBULIN NOS
     Indication: DIFFUSE LARGE B-CELL LYMPHOMA
     Route: 065
  3. RITUXIMAB (UNKNOWN) [Suspect]
     Active Substance: RITUXIMAB
     Indication: DIFFUSE LARGE B-CELL LYMPHOMA
     Dosage: 250 MG/M2 ON THE DAY OF RADIOIMMUNOTHERAPY
     Route: 042
  4. RITUXIMAB (UNKNOWN) [Suspect]
     Active Substance: RITUXIMAB
     Dosage: 250 MG/M2 1 WEEK BEFORE RADIOIMMUNOTHERAPY
     Route: 042
  5. THIOTEPA. [Suspect]
     Active Substance: THIOTEPA
     Indication: DIFFUSE LARGE B-CELL LYMPHOMA
     Route: 065
  6. ZEVALIN [Suspect]
     Active Substance: IBRITUMOMAB TIUXETAN
     Indication: DIFFUSE LARGE B-CELL LYMPHOMA
     Dosage: 1.4 GBQ (15 MBQ/KG 7 DAYS AFTER RLT)
     Route: 042
  7. FLUDARABINE [Suspect]
     Active Substance: FLUDARABINE PHOSPHATE
     Indication: DIFFUSE LARGE B-CELL LYMPHOMA
     Dosage: UNK
     Route: 065

REACTIONS (6)
  - Off label use [Unknown]
  - Lymphoma [Fatal]
  - Neutropenia [Unknown]
  - Pneumonia [Unknown]
  - Underdose [Unknown]
  - Disease progression [Fatal]
